FAERS Safety Report 11793709 (Version 2)
Quarter: 2015Q4

REPORT INFORMATION
  Report Type: Spontaneous
  Country: GB (occurrence: GB)
  Receive Date: 20151202
  Receipt Date: 20151203
  Transmission Date: 20160305
  Serious: Yes (Hospitalization)
  Sender: FDA-Public Use
  Company Number: GB-PFIZER INC-2015400477

PATIENT
  Age: 82 Year
  Sex: Male
  Weight: 95.25 kg

DRUGS (9)
  1. SIMVASTATIN. [Concomitant]
     Active Substance: SIMVASTATIN
     Dosage: UNK
  2. GABAPENTIN. [Suspect]
     Active Substance: GABAPENTIN
     Indication: NEURALGIA
     Dosage: 100 MG, 3X/DAY AT LEAST 2 HOURS BEFORE OR AFTER OMAPRAZOLE
     Route: 048
     Dates: start: 20151026, end: 20151101
  3. ASPIRIN. [Concomitant]
     Active Substance: ASPIRIN
     Dosage: UNK
  4. OMEPRAZOLE. [Concomitant]
     Active Substance: OMEPRAZOLE
     Dosage: UNK
  5. COCODAMOL [Concomitant]
     Active Substance: ACETAMINOPHEN\CODEINE PHOSPHATE
     Dosage: UNK
  6. FUROSEMIDE. [Concomitant]
     Active Substance: FUROSEMIDE
     Dosage: UNK
  7. GABAPENTIN. [Suspect]
     Active Substance: GABAPENTIN
     Dosage: 400 MG, 3X/DAY AT LEAST 2 HOURS BEFORE OR AFTER OMEPRAZOLE
     Route: 048
     Dates: start: 20151102, end: 20151104
  8. LOSARTAN. [Concomitant]
     Active Substance: LOSARTAN
     Dosage: UNK
  9. NICORANDIL [Concomitant]
     Active Substance: NICORANDIL
     Dosage: UNK

REACTIONS (6)
  - Heart rate increased [Recovered/Resolved]
  - Restless legs syndrome [Recovered/Resolved]
  - Agitation [Recovered/Resolved]
  - Hypoaesthesia [Recovered/Resolved]
  - Night sweats [Recovered/Resolved]
  - Abdominal pain upper [Recovered/Resolved]

NARRATIVE: CASE EVENT DATE: 20151027
